FAERS Safety Report 4992859-4 (Version None)
Quarter: 2006Q2

REPORT INFORMATION
  Report Type: 
  Country: None (occurrence: None)
  Receive Date: 20060504
  Receipt Date: 20051123
  Transmission Date: 20061013
  Serious: Yes (Hospitalization)
  Sender: FDA-Public Use
  Company Number: US-MERCK-0511USA04002

PATIENT
  Age: 50 Year
  Sex: Male
  Weight: 91 kg

DRUGS (13)
  1. VIOXX [Suspect]
     Indication: OSTEOARTHRITIS
     Route: 048
     Dates: start: 19991101, end: 20040401
  2. ASPIRIN [Concomitant]
     Route: 065
  3. GUAIFENESIN [Concomitant]
     Route: 065
  4. ACETAMINOPHEN AND HYDROCODONE BITARTRATE [Concomitant]
     Route: 065
  5. FLONASE [Concomitant]
     Route: 065
  6. LAMISIL [Concomitant]
     Route: 065
  7. FOLIC ACID [Concomitant]
     Route: 065
  8. NEXIUM [Concomitant]
     Route: 065
  9. NIASPAN [Concomitant]
     Route: 065
  10. PROTONIX [Concomitant]
     Route: 065
  11. ZITHROMAX [Concomitant]
     Route: 065
  12. ZYRTEC [Concomitant]
     Route: 065
  13. ADVIL [Concomitant]
     Indication: PAIN
     Route: 065

REACTIONS (8)
  - ACUTE MYOCARDIAL INFARCTION [None]
  - ACUTE SINUSITIS [None]
  - ANXIETY [None]
  - CORONARY ARTERY DISEASE [None]
  - DEPRESSION [None]
  - GASTROOESOPHAGEAL REFLUX DISEASE [None]
  - INFECTION [None]
  - INSOMNIA [None]
